FAERS Safety Report 25518390 (Version 1)
Quarter: 2025Q3

REPORT INFORMATION
  Report Type: Spontaneous
  Country: TW (occurrence: TW)
  Receive Date: 20250704
  Receipt Date: 20250704
  Transmission Date: 20251020
  Serious: Yes (Other)
  Sender: EXELA PHARMA SCIENCES
  Company Number: TW-EXELAPHARMA-2025EXLA00117

PATIENT
  Age: 32 Year
  Sex: Female
  Weight: 68 kg

DRUGS (12)
  1. FENTANYL CITRATE [Suspect]
     Active Substance: FENTANYL CITRATE
     Indication: Anaesthesia
     Route: 042
  2. REMIFENTANIL [Suspect]
     Active Substance: REMIFENTANIL
     Indication: Anaesthesia
  3. DULOXETINE [Suspect]
     Active Substance: DULOXETINE
     Indication: Product used for unknown indication
  4. PROPOFOL [Concomitant]
     Active Substance: PROPOFOL
     Indication: Induction of anaesthesia
     Route: 040
  5. PROPOFOL [Concomitant]
     Active Substance: PROPOFOL
     Route: 040
  6. MORPHINE [Concomitant]
     Active Substance: MORPHINE
     Indication: Postoperative analgesia
  7. TRAMADOL [Concomitant]
     Active Substance: TRAMADOL
     Indication: Postoperative analgesia
  8. FLUNITRAZEPAM [Concomitant]
     Active Substance: FLUNITRAZEPAM
  9. ALPRAZOLAM [Concomitant]
     Active Substance: ALPRAZOLAM
  10. ESCITALOPRAM [Concomitant]
     Active Substance: ESCITALOPRAM OXALATE
  11. TRAZODONE [Concomitant]
     Active Substance: TRAZODONE HYDROCHLORIDE
  12. QUETIAPINE [Concomitant]
     Active Substance: QUETIAPINE

REACTIONS (3)
  - Cyanosis [Recovered/Resolved]
  - Hypoventilation [Recovered/Resolved]
  - Chest wall rigidity [Recovered/Resolved]
